FAERS Safety Report 9476379 (Version 1)
Quarter: 2013Q3

REPORT INFORMATION
  Report Type: Spontaneous
  Country: FR (occurrence: FR)
  Receive Date: 20130826
  Receipt Date: 20130826
  Transmission Date: 20140515
  Serious: Yes (Death)
  Sender: FDA-Public Use
  Company Number: FR-SANOFI-AVENTIS-2013SA084224

PATIENT
  Age: 87 Year
  Sex: Male
  Weight: 83 kg

DRUGS (13)
  1. PARACETAMOL [Suspect]
     Indication: PAIN
     Route: 048
     Dates: end: 201303
  2. LASILIX FABILE [Suspect]
     Indication: HYPERTENSION
     Route: 048
     Dates: end: 20130318
  3. AMIODARONE HYDROCHLORIDE [Suspect]
     Indication: ARRHYTHMIA
     Dosage: MIDDAY
     Route: 048
     Dates: end: 20130320
  4. KARDEGIC [Suspect]
     Indication: PLATELET AGGREGATION INHIBITION
     Dosage: MIDDAY
     Route: 048
     Dates: end: 20130320
  5. PERINDOPRIL [Suspect]
     Indication: HYPERTENSION
     Dosage: IN MORNING
     Route: 048
     Dates: end: 20130318
  6. ZOLPIDEM [Suspect]
     Indication: INSOMNIA
     Dosage: IN EVENING
     Route: 048
     Dates: end: 20130319
  7. PANTOPRAZOLE [Suspect]
     Indication: PROPHYLAXIS
     Dosage: MIDDAY
     Route: 048
     Dates: end: 20130320
  8. SPECIAFOLDINE [Suspect]
     Indication: FOLATE DEFICIENCY
     Dosage: MIDDAY
     Route: 048
     Dates: end: 20130320
  9. ALFUZOSIN HYDROCHLORIDE [Suspect]
     Indication: PRODUCT USED FOR UNKNOWN INDICATION
     Route: 048
     Dates: end: 20130312
  10. ALLOPURINOL [Suspect]
     Indication: PRODUCT USED FOR UNKNOWN INDICATION
     Route: 048
     Dates: end: 20130312
  11. PERFALGAN [Suspect]
     Indication: PAIN
     Route: 042
     Dates: start: 20130317, end: 20130321
  12. LEVOTHYROX [Suspect]
     Indication: HYPOTHYROIDISM
     Dosage: IN THE MORNING
     Route: 048
     Dates: end: 20130320
  13. AUGMENTIN [Suspect]
     Indication: PRODUCT USED FOR UNKNOWN INDICATION
     Route: 065
     Dates: start: 20130313, end: 20130317

REACTIONS (3)
  - Hepatocellular injury [Fatal]
  - Hepatic enzyme increased [Fatal]
  - Analgesic drug level increased [Fatal]
